FAERS Safety Report 8240623-5 (Version None)
Quarter: 2012Q1

REPORT INFORMATION
  Report Type: 
  Country: None (occurrence: None)
  Receive Date: 20120328
  Receipt Date: 20120316
  Transmission Date: 20120608
  Serious: Yes (Hospitalization)
  Sender: FDA-Public Use
  Company Number: JP-SHIRE-ALL1-2012-01568

PATIENT
  Age: 38 Year
  Sex: Male

DRUGS (13)
  1. CINACALCET HYDROCHLORIDE [Concomitant]
     Dosage: 50 MG, UNKNOWN
     Route: 048
     Dates: start: 20080910, end: 20081217
  2. FAMOTIDINE [Concomitant]
     Indication: PRODUCT USED FOR UNKNOWN INDICATION
     Dosage: 10 MG, UNKNOWN
     Route: 048
  3. RENAGEL [Concomitant]
     Dosage: 2500 MG, UNKNOWN
     Route: 048
     Dates: start: 20090715, end: 20091007
  4. OXAROL [Concomitant]
     Indication: PRODUCT USED FOR UNKNOWN INDICATION
     Dosage: 25 ?G, 1X/WEEK
     Route: 042
     Dates: end: 20090617
  5. CINACALCET HYDROCHLORIDE [Concomitant]
     Indication: HYPERPARATHYROIDISM SECONDARY
     Dosage: 25 MG, UNKNOWN
     Route: 048
     Dates: start: 20080227, end: 20080910
  6. RENAGEL [Concomitant]
     Indication: HYPERPHOSPHATAEMIA
     Dosage: 3750 MG, UNKNOWN
     Route: 048
     Dates: end: 20090715
  7. OXAROL [Concomitant]
     Dosage: 15 ?G, 1X/WEEK
     Route: 042
     Dates: start: 20090619, end: 20091014
  8. YODEL [Concomitant]
     Indication: PRODUCT USED FOR UNKNOWN INDICATION
     Dosage: 80 MG, UNKNOWN
     Route: 048
  9. ALLOPURINOL [Concomitant]
     Indication: PRODUCT USED FOR UNKNOWN INDICATION
     Dosage: 100 MG, UNKNOWN
     Route: 048
  10. EPOGIN [Concomitant]
     Indication: PRODUCT USED FOR UNKNOWN INDICATION
     Dosage: 750 IU, UNKNOWN
     Route: 042
  11. OXAROL [Concomitant]
     Dosage: 7.5 ?G, 1X/WEEK
     Route: 042
     Dates: start: 20091016
  12. CINACALCET HYDROCHLORIDE [Concomitant]
     Dosage: 25 MG, UNKNOWN
     Route: 048
     Dates: start: 20081217
  13. FOSRENOL [Suspect]
     Indication: HYPERPHOSPHATAEMIA
     Dosage: 750 MG, UNKNOWN(AFTER MEALS)
     Route: 048
     Dates: start: 20090325

REACTIONS (3)
  - VOMITING [None]
  - CONVULSION [None]
  - NAUSEA [None]
